FAERS Safety Report 20546310 (Version 2)
Quarter: 2022Q1

REPORT INFORMATION
  Report Type: Spontaneous
  Country: US (occurrence: None)
  Receive Date: 20220303
  Receipt Date: 20220311
  Transmission Date: 20220423
  Serious: Yes (Other)
  Sender: FDA-Public Use
  Company Number: US-ROCHE-3038561

PATIENT
  Sex: Male
  Weight: 69.8 kg

DRUGS (2)
  1. VENCLEXTA [Suspect]
     Active Substance: VENETOCLAX
     Indication: Chronic lymphocytic leukaemia refractory
     Route: 048
     Dates: start: 20220211
  2. GAZYVA [Suspect]
     Active Substance: OBINUTUZUMAB
     Indication: Chronic lymphocytic leukaemia refractory
     Route: 042
     Dates: start: 202112

REACTIONS (2)
  - Pneumonitis [Not Recovered/Not Resolved]
  - Off label use [Unknown]
